FAERS Safety Report 25113287 (Version 3)
Quarter: 2025Q2

REPORT INFORMATION
  Report Type: Spontaneous
  Country: US (occurrence: US)
  Receive Date: 20250324
  Receipt Date: 20250618
  Transmission Date: 20250716
  Serious: No
  Sender: UCB
  Company Number: US-UCBSA-2024068571

PATIENT
  Sex: Female

DRUGS (2)
  1. BIMZELX [Suspect]
     Active Substance: BIMEKIZUMAB-BKZX
     Indication: Hidradenitis
     Dosage: 320 MILLIGRAM, EV 2 WEEKS(QOW)
     Route: 058
  2. FURAZOLIDONE\METRONIDAZOLE [Suspect]
     Active Substance: FURAZOLIDONE\METRONIDAZOLE
     Indication: Product used for unknown indication

REACTIONS (3)
  - Skin disorder [Unknown]
  - Chromaturia [Unknown]
  - Injection site pruritus [Unknown]
